FAERS Safety Report 9083031 (Version 4)
Quarter: 2013Q2

REPORT INFORMATION
  Report Type: Report from Study
  Country: CA (occurrence: CA)
  Receive Date: 20130130
  Receipt Date: 20130620
  Transmission Date: 20140414
  Serious: Yes (Other)
  Sender: FDA-Public Use
  Company Number: PHHY2012CA025028

PATIENT
  Age: 39 Year
  Sex: Female

DRUGS (4)
  1. ILARIS [Suspect]
     Indication: CRYOPYRIN ASSOCIATED PERIODIC SYNDROME
     Dosage: 150 MG, Q8 WEEK
     Route: 058
     Dates: start: 201110
  2. ILARIS [Suspect]
     Indication: VASCULITIS
     Dosage: UNK
     Dates: start: 20130415
  3. ADVIL LIQUI-GELS [Suspect]
  4. CORTIZONE [Concomitant]

REACTIONS (20)
  - Depression [Unknown]
  - Insomnia [Unknown]
  - Nervousness [Unknown]
  - Agitation [Unknown]
  - Suicidal ideation [Unknown]
  - Abdominal pain [Unknown]
  - Feeling abnormal [Unknown]
  - Blood urine present [Unknown]
  - Fall [Unknown]
  - Dry skin [Unknown]
  - Hypoaesthesia [Unknown]
  - Gait disturbance [Unknown]
  - Paraesthesia [Unknown]
  - Local swelling [Unknown]
  - Sensation of heaviness [Unknown]
  - Sensation of blood flow [Unknown]
  - Hyperhidrosis [Unknown]
  - Asthenia [Unknown]
  - Dizziness [Unknown]
  - Fatigue [Unknown]
